FAERS Safety Report 13256104 (Version 1)
Quarter: 2017Q1

REPORT INFORMATION
  Report Type: Spontaneous
  Country: FR (occurrence: FR)
  Receive Date: 20170221
  Receipt Date: 20170221
  Transmission Date: 20170428
  Serious: Yes (Hospitalization, Other)
  Sender: FDA-Public Use
  Company Number: FR-GLAXOSMITHKLINE-FR2017GSK023182

PATIENT
  Age: 77 Year
  Sex: Female

DRUGS (18)
  1. MABTHERA [Suspect]
     Active Substance: RITUXIMAB
     Indication: NON-HODGKIN^S LYMPHOMA
     Dosage: UNK
     Route: 042
     Dates: end: 201610
  2. CORDARONE [Concomitant]
     Active Substance: AMIODARONE HYDROCHLORIDE
  3. FUMAFER [Concomitant]
     Active Substance: FERROUS FUMARATE
  4. PLAQUENIL [Concomitant]
     Active Substance: HYDROXYCHLOROQUINE SULFATE
     Indication: THROMBOCYTOPENIA
  5. TAHOR [Concomitant]
     Active Substance: ATORVASTATIN CALCIUM
  6. AMLODIPINE [Concomitant]
     Active Substance: AMLODIPINE BESYLATE
  7. BISOCE [Concomitant]
     Active Substance: BISOPROLOL
  8. BACTRIM [Suspect]
     Active Substance: SULFAMETHOXAZOLE\TRIMETHOPRIM
     Indication: NON-HODGKIN^S LYMPHOMA
     Dosage: UNK
     Route: 048
     Dates: start: 201610, end: 201702
  9. ZOPICLONE [Concomitant]
     Active Substance: ZOPICLONE
  10. KARDEGIC [Concomitant]
     Active Substance: ASPIRIN LYSINE
  11. LEVOTHYROX [Concomitant]
     Active Substance: LEVOTHYROXINE
  12. ZELITREX [Suspect]
     Active Substance: VALACYCLOVIR HYDROCHLORIDE
     Indication: PRODUCT USED FOR UNKNOWN INDICATION
     Dosage: UNK
     Route: 048
     Dates: start: 201610, end: 201702
  13. LANSOPRAZOLE. [Concomitant]
     Active Substance: LANSOPRAZOLE
  14. PREDNISOLONE. [Concomitant]
     Active Substance: PREDNISOLONE
  15. LASILIX [Concomitant]
     Active Substance: FUROSEMIDE
  16. ALDACTONE [Concomitant]
     Active Substance: SPIRONOLACTONE
  17. PERINDOPRIL [Concomitant]
     Active Substance: PERINDOPRIL
  18. DOLIPRANE [Concomitant]
     Active Substance: ACETAMINOPHEN

REACTIONS (2)
  - Anaemia [Not Recovered/Not Resolved]
  - Neutropenia [Not Recovered/Not Resolved]

NARRATIVE: CASE EVENT DATE: 20170203
